FAERS Safety Report 4899334-6 (Version None)
Quarter: 2006Q1

REPORT INFORMATION
  Report Type: 
  Country: None (occurrence: None)
  Receive Date: 20060131
  Receipt Date: 20060119
  Transmission Date: 20060701
  Serious: Yes (Disabling)
  Sender: FDA-Public Use
  Company Number: 2005165925

PATIENT
  Age: 68 Year
  Sex: Male
  Weight: 68.0396 kg

DRUGS (8)
  1. LYRICA [Suspect]
     Indication: ILL-DEFINED DISORDER
     Dosage: 150 MG (75 MG, 2 IN 1 D), ORAL
     Route: 048
     Dates: start: 20051124
  2. ACETAMINOPHEN AND TRAMADOL HCL [Concomitant]
  3. DURAGESIC-100 [Concomitant]
  4. FOSAMAX [Concomitant]
  5. BACLOFEN [Concomitant]
  6. MELOXICAM (MELOXICAM) [Concomitant]
  7. CLONAZEPAM [Concomitant]
  8. FLOMAX [Concomitant]

REACTIONS (2)
  - BURNING SENSATION [None]
  - CONDITION AGGRAVATED [None]
